FAERS Safety Report 20197348 (Version 2)
Quarter: 2022Q1

REPORT INFORMATION
  Report Type: Spontaneous
  Country: JP (occurrence: JP)
  Receive Date: 20211217
  Receipt Date: 20220102
  Transmission Date: 20220423
  Serious: Yes (Hospitalization, Other)
  Sender: FDA-Public Use
  Company Number: JP-ORGANON-O2112JPN001625

PATIENT
  Age: 92 Year
  Sex: Female
  Weight: 36.5 kg

DRUGS (5)
  1. SIMVASTATIN [Interacting]
     Active Substance: SIMVASTATIN
     Indication: Hyperlipidaemia
     Dosage: 5 MILLIGRAM PER DAY (QD)
     Route: 048
  2. AZELNIDIPINE [Interacting]
     Active Substance: AZELNIDIPINE
     Indication: Hypertension
     Dosage: 16 MILLIGRAM PER DAY (QD)
     Route: 048
  3. FAMOTIDINE [Concomitant]
     Active Substance: FAMOTIDINE
     Indication: Chronic gastritis
     Dosage: 20 MILLIGRAM PER DAY (QD)
  4. IRSOGLADINE MALEATE [Concomitant]
     Active Substance: IRSOGLADINE MALEATE
     Indication: Chronic gastritis
     Dosage: 4 MILLIGRAM PER DAY (QD)
  5. MOSAPRIDE CITRATE DIHYDRATE [Concomitant]
     Active Substance: MOSAPRIDE CITRATE DIHYDRATE
     Indication: Chronic gastritis
     Dosage: 15 MILLIGRAM PER DAY (QD)

REACTIONS (2)
  - Atrioventricular block complete [Recovered/Resolved]
  - Drug interaction [Recovered/Resolved]
